FAERS Safety Report 9969943 (Version 1)
Quarter: 2014Q1

REPORT INFORMATION
  Report Type: Spontaneous
  Country: US (occurrence: US)
  Receive Date: 20140306
  Receipt Date: 20140306
  Transmission Date: 20141002
  Serious: No
  Sender: FDA-Public Use
  Company Number: US-SA-2014SA015778

PATIENT
  Age: 60 Year
  Sex: Female

DRUGS (1)
  1. GAVISCON [Suspect]
     Route: 065

REACTIONS (1)
  - Abdominal pain upper [Not Recovered/Not Resolved]
